FAERS Safety Report 20174081 (Version 1)
Quarter: 2021Q4

REPORT INFORMATION
  Report Type: Spontaneous
  Country: FR (occurrence: FR)
  Receive Date: 20211213
  Receipt Date: 20211213
  Transmission Date: 20220303
  Serious: Yes (Other)
  Sender: FDA-Public Use
  Company Number: FR-AFSSAPS-MP20218128

PATIENT
  Age: 92 Year
  Sex: Female
  Weight: 60 kg

DRUGS (5)
  1. OLANZAPINE [Suspect]
     Active Substance: OLANZAPINE
     Indication: Agitation
     Dosage: UNK, ()
     Route: 065
     Dates: start: 20210527, end: 20210529
  2. TOCO 500 mg, soft capsule [Concomitant]
     Indication: Product used for unknown indication
     Dosage: 500 MILLIGRAM, DAILY
     Route: 065
  3. LORAZEPAM MERCK 1 mg film-coated tablets [Concomitant]
     Indication: Product used for unknown indication
     Dosage: 2 MILLIGRAM, DAILY, 1 CPR PER DAY
     Route: 048
  4. FOLIC ACID [Concomitant]
     Active Substance: FOLIC ACID
     Indication: Product used for unknown indication
     Dosage: 5 MILLIGRAM, DAILY
     Route: 048
  5. TRANSIPEG 2.95 g, powder for oral solution in sachet [Concomitant]
     Indication: Product used for unknown indication
     Dosage: 2.95 GRAM, DAILY
     Route: 048

REACTIONS (3)
  - Hallucination [Unknown]
  - Fall [Unknown]
  - Confusional state [Unknown]

NARRATIVE: CASE EVENT DATE: 20210529
